FAERS Safety Report 5253759-8 (Version None)
Quarter: 2007Q1

REPORT INFORMATION
  Report Type: 
  Country: None (occurrence: None)
  Receive Date: 20070227
  Receipt Date: 20070214
  Transmission Date: 20070707
  Serious: Yes (Hospitalization)
  Sender: FDA-Public Use
  Company Number: 2007BI002238

PATIENT
  Age: 50 Year
  Sex: Female

DRUGS (9)
  1. NATALIZUMAB [Suspect]
     Indication: MULTIPLE SCLEROSIS
     Dosage: 300 MG;QM; IV
     Route: 042
     Dates: start: 20061101
  2. BACLOFEN [Concomitant]
  3. TIZANIDINE HCL [Concomitant]
  4. AMANTADINE HCL [Concomitant]
  5. PROVIGIL [Concomitant]
  6. ASPIRIN [Concomitant]
  7. PAROXETINE HCL [Concomitant]
  8. AVAPRO [Concomitant]
  9. ZETIA [Concomitant]

REACTIONS (3)
  - DEHYDRATION [None]
  - FLUID INTAKE REDUCED [None]
  - GASTROENTERITIS VIRAL [None]
